FAERS Safety Report 5805073-7 (Version None)
Quarter: 2008Q3

REPORT INFORMATION
  Report Type: 
  Country: None (occurrence: None)
  Receive Date: 20080709
  Receipt Date: 20080703
  Transmission Date: 20090109
  Serious: Yes (Hospitalization)
  Sender: FDA-Public Use
  Company Number: GB-PFIZER INC-2008055783

PATIENT
  Age: 79 Year
  Sex: Male

DRUGS (10)
  1. FLUCONAZOLE [Suspect]
  2. SIMVASTATIN [Interacting]
  3. FOLIC ACID [Concomitant]
  4. GOSERELIN [Concomitant]
  5. INSULIN [Concomitant]
  6. LISINOPRIL [Concomitant]
  7. MOMETASONE FUROATE [Concomitant]
     Route: 055
  8. TERAZOSIN HCL [Concomitant]
  9. THIAMINE HCL [Concomitant]
  10. TOLTERODINE TARTRATE [Concomitant]

REACTIONS (8)
  - CEREBROVASCULAR ACCIDENT [None]
  - DRUG INTERACTION [None]
  - DYSPHAGIA [None]
  - EMPHYSEMA [None]
  - HAEMOGLOBIN DECREASED [None]
  - MASTICATION DISORDER [None]
  - RHABDOMYOLYSIS [None]
  - SPEECH DISORDER [None]
